FAERS Safety Report 5322464-1 (Version None)
Quarter: 2007Q2

REPORT INFORMATION
  Report Type: 
  Country: None (occurrence: None)
  Receive Date: 20070511
  Receipt Date: 20070508
  Transmission Date: 20071010
  Serious: Yes (Disabling)
  Sender: FDA-Public Use
  Company Number: US-GENENTECH-240156

PATIENT
  Sex: Female
  Weight: 63.492 kg

DRUGS (2)
  1. BEVACIZUMAB [Suspect]
     Indication: BREAST CANCER METASTATIC
     Dosage: 1070 MG, Q3W
     Route: 042
     Dates: start: 20061115
  2. ABRAXANE [Concomitant]
     Indication: BREAST CANCER METASTATIC
     Dosage: 174 UNK, UNK
     Route: 065
     Dates: start: 20061206

REACTIONS (1)
  - HEPATIC CIRRHOSIS [None]
